FAERS Safety Report 9340520 (Version 2)
Quarter: 2013Q2

REPORT INFORMATION
  Report Type: Report from Study
  Country: US (occurrence: US)
  Receive Date: 20130610
  Receipt Date: 20130617
  Transmission Date: 20140414
  Serious: No
  Sender: FDA-Public Use
  Company Number: US-TEVA-410841USA

PATIENT
  Age: 17 Year
  Sex: Female

DRUGS (2)
  1. CLARAVIS [Suspect]
     Dosage: 80 MILLIGRAM DAILY;
     Dates: start: 20130220, end: 20130502
  2. EUGYNON [Concomitant]
     Indication: CONTRACEPTION

REACTIONS (1)
  - Pregnancy test false positive [Unknown]
